FAERS Safety Report 23903715 (Version 1)
Quarter: 2024Q2

REPORT INFORMATION
  Report Type: Spontaneous
  Country: FR (occurrence: FR)
  Receive Date: 20240527
  Receipt Date: 20240527
  Transmission Date: 20240716
  Serious: Yes (Life-Threatening, Hospitalization, Other)
  Sender: FDA-Public Use
  Company Number: None

PATIENT
  Age: 41 Year
  Sex: Female
  Weight: 57 kg

DRUGS (5)
  1. SODIUM CHLORIDE [Suspect]
     Active Substance: SODIUM CHLORIDE
     Indication: Hysteroscopy
     Dosage: 12 L (LITRE) UNSPECIFIED FREQUENCY
     Route: 015
     Dates: start: 20240412, end: 20240412
  2. TRANEXAMIC ACID [Concomitant]
     Active Substance: TRANEXAMIC ACID
     Indication: Uterine haemorrhage
     Dosage: 1 G
     Route: 065
     Dates: start: 20240412, end: 20240412
  3. BUPIVACAINE [Concomitant]
     Active Substance: BUPIVACAINE
     Indication: Spinal anaesthesia
     Dosage: (BUPIVACAINE VIATRIS 20 MG/4 ML, SOLUTION INJECTABLE FOR INTRASPINAL USE IN AMPOULE) 10 MG (MILLIGRA
     Route: 050
     Dates: start: 20240412, end: 20240412
  4. XYLOCAINE [Concomitant]
     Active Substance: LIDOCAINE HYDROCHLORIDE\LIDOCAINE HYDROCHLORIDE ANHYDROUS
     Indication: Spinal anaesthesia
     Dosage: 50 MG (MILLIGRAM)
     Route: 058
     Dates: start: 20240412, end: 20240412
  5. OXYTOCIN [Concomitant]
     Active Substance: OXYTOCIN
     Indication: Uterine haemorrhage
     Dosage: 5 MG (MILLIGRAM)
     Route: 065
     Dates: start: 20240412, end: 20240412

REACTIONS (5)
  - Pulmonary oedema [Recovered/Resolved]
  - Face oedema [Recovered/Resolved]
  - Ascites [Recovered/Resolved]
  - Haemodynamic instability [Recovered/Resolved]
  - Depressed level of consciousness [Recovered/Resolved]

NARRATIVE: CASE EVENT DATE: 20240412
